FAERS Safety Report 25206946 (Version 1)
Quarter: 2025Q2

REPORT INFORMATION
  Report Type: Spontaneous
  Country: US (occurrence: US)
  Receive Date: 20250417
  Receipt Date: 20250417
  Transmission Date: 20250717
  Serious: No
  Sender: SANDOZ
  Company Number: US-SANDOZ-SDZ2025US023732

PATIENT
  Age: 44 Year
  Sex: Female

DRUGS (3)
  1. OFEV [Suspect]
     Active Substance: NINTEDANIB
     Indication: Idiopathic pulmonary fibrosis
     Dosage: 150 MG, Q12H
     Route: 048
     Dates: start: 20250106, end: 20250206
  2. OFEV [Suspect]
     Active Substance: NINTEDANIB
     Dosage: 100 MG, Q12H
     Route: 048
  3. ZOFRAN [Suspect]
     Active Substance: ONDANSETRON HYDROCHLORIDE
     Indication: Product used for unknown indication
     Route: 065

REACTIONS (11)
  - Diarrhoea [Unknown]
  - Musculoskeletal pain [Unknown]
  - Abdominal pain upper [Unknown]
  - Blood alkaline phosphatase increased [Unknown]
  - Early satiety [Unknown]
  - Ocular discomfort [Unknown]
  - Weight increased [Unknown]
  - Gastrooesophageal reflux disease [Unknown]
  - Visual impairment [Unknown]
  - Constipation [Unknown]
  - Therapeutic product effect incomplete [Unknown]

NARRATIVE: CASE EVENT DATE: 20250101
